FAERS Safety Report 21140887 (Version 1)
Quarter: 2022Q3

REPORT INFORMATION
  Report Type: Spontaneous
  Country: US (occurrence: None)
  Receive Date: 20220728
  Receipt Date: 20220728
  Transmission Date: 20221026
  Serious: No
  Sender: FDA-Public Use
  Company Number: US-Ultragenyx Pharmaceutical Inc.-US-UGNX-22-00130

PATIENT
  Age: 28 Year
  Sex: Female
  Weight: 52.62 kg

DRUGS (60)
  1. DOJOLVI [Suspect]
     Active Substance: TRIHEPTANOIN
     Indication: Carnitine palmitoyltransferase deficiency
     Dosage: 5 ML ONCE TO TWICE DAILY VIA G-TUBE
     Dates: start: 20220124
  2. DOJOLVI [Suspect]
     Active Substance: TRIHEPTANOIN
     Indication: Mitochondrial myopathy
  3. DOJOLVI [Suspect]
     Active Substance: TRIHEPTANOIN
     Dosage: 2ML, FOUR TIMES A DAY, THEN INCREASE BY 2ML EVERY 3 DAYS, VIA G-TUBE
  4. DOJOLVI [Suspect]
     Active Substance: TRIHEPTANOIN
     Dosage: 8ML, FUR TIMES DAILY VIA G-TUBE
     Dates: start: 20211209
  5. DOJOLVI [Suspect]
     Active Substance: TRIHEPTANOIN
     Dosage: 2.5 ML FOUR TIMES DAILY VIA G-TUBE
     Dates: start: 20211208
  6. DOJOLVI [Suspect]
     Active Substance: TRIHEPTANOIN
  7. CREATINE [Concomitant]
     Active Substance: CREATINE
     Indication: Product used for unknown indication
  8. MORPHINE [Concomitant]
     Active Substance: MORPHINE
     Indication: Product used for unknown indication
  9. DILAUDID [Concomitant]
     Active Substance: HYDROMORPHONE HYDROCHLORIDE
     Indication: Product used for unknown indication
     Dosage: 2 MG EVERY 6 HOURS AS NEEDED; MAXIMUM DAILY DOSE OF 4 TABLETS
     Route: 048
  10. CLONIDINE HYDROCHLORIDE [Concomitant]
     Active Substance: CLONIDINE HYDROCHLORIDE
     Indication: Blood pressure diastolic increased
     Route: 048
     Dates: start: 20200622
  11. CLONIDINE HYDROCHLORIDE [Concomitant]
     Active Substance: CLONIDINE HYDROCHLORIDE
     Dosage: UP TO FOUR TIMES DAILY AS NEEDED
     Route: 048
  12. ATIVAN [Concomitant]
     Active Substance: LORAZEPAM
     Indication: Product used for unknown indication
     Dosage: 3 TIMES DAILY, AS NEEDED
     Dates: start: 20211130
  13. KATE FARMS 1.5 PEPTIDE G FORMULA [Concomitant]
     Indication: Nutritional supplementation
     Dosage: AT NIGHT
  14. MOTEGRITY [Concomitant]
     Active Substance: PRUCALOPRIDE SUCCINATE
     Indication: Product used for unknown indication
  15. COENZYME Q10 [Concomitant]
     Active Substance: DIETARY SUPPLEMENT\UBIDECARENONE
     Indication: Product used for unknown indication
  16. CARNITINE [Concomitant]
     Active Substance: CARNITINE
     Indication: Product used for unknown indication
  17. FOLIC ACID [Concomitant]
     Active Substance: FOLIC ACID
     Indication: Product used for unknown indication
     Route: 048
     Dates: start: 20200622
  18. ACETYLCYSTEINE [Concomitant]
     Active Substance: ACETYLCYSTEINE
     Indication: Product used for unknown indication
  19. GLUTAMINE [Concomitant]
     Active Substance: GLUTAMINE
     Indication: Product used for unknown indication
  20. ZOFRAN [Concomitant]
     Active Substance: ONDANSETRON HYDROCHLORIDE
     Indication: Nausea
     Route: 060
     Dates: start: 20220105
  21. ZOFRAN [Concomitant]
     Active Substance: ONDANSETRON HYDROCHLORIDE
     Indication: Vomiting
     Dosage: AS NEEDED
     Route: 060
  22. MARINOL [Concomitant]
     Active Substance: DRONABINOL
     Indication: Product used for unknown indication
     Dosage: 3 TIMES DAILY, AS NEEDED, MAXIMUM DAILY DOSE OF 3 PER DAY
     Dates: start: 20220118
  23. CEVIMELINE [Concomitant]
     Active Substance: CEVIMELINE
     Indication: Sjogren^s syndrome
     Route: 048
  24. CEVIMELINE [Concomitant]
     Active Substance: CEVIMELINE
     Indication: Dry eye
     Dosage: 1-3 TIMES DAILY AS NEEDED
     Route: 048
     Dates: start: 20210802
  25. CEVIMELINE [Concomitant]
     Active Substance: CEVIMELINE
     Indication: Dry mouth
  26. UNSPECIFIED INGREDIENT [Concomitant]
     Active Substance: UNSPECIFIED INGREDIENT
     Indication: Product used for unknown indication
  27. LABETALOL HYDROCHLORIDE [Concomitant]
     Active Substance: LABETALOL HYDROCHLORIDE
     Indication: Blood pressure measurement
     Route: 048
     Dates: start: 20210111
  28. LISINOPRIL [Concomitant]
     Active Substance: LISINOPRIL
     Indication: Product used for unknown indication
     Route: 048
     Dates: start: 20201116
  29. DOXAZOSIN MESYLATE [Concomitant]
     Active Substance: DOXAZOSIN MESYLATE
     Indication: Product used for unknown indication
     Route: 048
     Dates: start: 20210112
  30. VENOFER [Concomitant]
     Active Substance: IRON SUCROSE
     Indication: Iron deficiency anaemia
     Dosage: 20 MG/ML, 10ML X5 DOSES, EVERY OTHER DAY
     Route: 042
     Dates: start: 20220308
  31. VENOFER [Concomitant]
     Active Substance: IRON SUCROSE
     Indication: Malnutrition
  32. MESALAMINE [Concomitant]
     Active Substance: MESALAMINE
     Indication: Product used for unknown indication
     Route: 048
     Dates: start: 20220301
  33. AZELASTINE HYDROCHLORIDE [Concomitant]
     Active Substance: AZELASTINE HYDROCHLORIDE
     Indication: Product used for unknown indication
     Dosage: 137 MCG/SPRAY, 2 SPRAYS EACH NOSTRIL TWICE A DAY
     Dates: start: 20220215
  34. SUCRALFATE [Concomitant]
     Active Substance: SUCRALFATE
     Indication: Product used for unknown indication
     Dosage: 1 G/10ML, 10ML FOUR TIMES A DAY
     Dates: start: 20220202
  35. ERYTHROMYCIN BASE [Concomitant]
     Active Substance: ERYTHROMYCIN
     Indication: Product used for unknown indication
     Dates: start: 20211124
  36. POTASSIUM CHLORIDE [Concomitant]
     Active Substance: POTASSIUM CHLORIDE
     Indication: Product used for unknown indication
     Dosage: 20 MEQ/15ML (10%), 15ML VIA J-TUBE EVERY DAY
     Dates: start: 20211025
  37. LORATADINE [Concomitant]
     Active Substance: LORATADINE
     Indication: Product used for unknown indication
     Route: 048
     Dates: start: 20210923
  38. CETIRIZINE HCL [Concomitant]
     Active Substance: CETIRIZINE HYDROCHLORIDE
     Indication: Hypersensitivity
     Dosage: 5MG/5ML, TAKE 2 TEASPOONFULS (10ML)
     Route: 048
     Dates: start: 20210830
  39. EPIPEN [Concomitant]
     Active Substance: EPINEPHRINE
     Indication: Product used for unknown indication
     Dosage: 0.3 MG/0.3 ML AS DIRECTED
     Dates: start: 20210614
  40. OXCARBAZEPINE [Concomitant]
     Active Substance: OXCARBAZEPINE
     Indication: Product used for unknown indication
     Route: 048
     Dates: start: 20210519
  41. HYDROCHLOROTHIAZIDE\TRIAMTERENE [Concomitant]
     Active Substance: HYDROCHLOROTHIAZIDE\TRIAMTERENE
     Indication: Product used for unknown indication
     Dosage: 37.5MG + 25MG
     Route: 048
     Dates: start: 20210303
  42. VITAMIN D [Concomitant]
     Active Substance: VITAMIN D NOS
     Indication: Product used for unknown indication
     Dosage: 1.25 MG (50000UT)
     Route: 048
     Dates: start: 20201130
  43. LOPERAMIDE HYDROCHLORIDE [Concomitant]
     Active Substance: LOPERAMIDE HYDROCHLORIDE
     Indication: Product used for unknown indication
     Dosage: FOUR TIMES DAILY AS NEEDED
     Route: 048
  44. HYDROXYZINE HYDROCHLORIDE [Concomitant]
     Active Substance: HYDROXYZINE HYDROCHLORIDE
     Indication: Product used for unknown indication
     Dosage: EVERY DAY AT BEDTIME VIA G-TUBE
  45. MELOXICAM [Concomitant]
     Active Substance: MELOXICAM
     Indication: Product used for unknown indication
     Route: 048
  46. FAMOTIDINE [Concomitant]
     Active Substance: FAMOTIDINE
     Indication: Product used for unknown indication
     Route: 048
  47. PROCHLORPERAZINE MALEATE [Concomitant]
     Active Substance: PROCHLORPERAZINE MALEATE
     Indication: Product used for unknown indication
     Dosage: 10 MG EVERY 4 HOURS AS NEEDED
     Route: 048
  48. TIZANIDINE HYDROCHLORIDE [Concomitant]
     Active Substance: TIZANIDINE HYDROCHLORIDE
     Indication: Product used for unknown indication
     Route: 048
  49. SUMATRIPTAN SUCCINATE [Concomitant]
     Active Substance: SUMATRIPTAN SUCCINATE
     Indication: Migraine
     Dosage: 4MG/0.5ML USE AS NEEDED, NO MORE THAN TWO TIMES IN 24 HOURS
  50. MAGNESIUM OXIDE [Concomitant]
     Active Substance: MAGNESIUM OXIDE
     Indication: Product used for unknown indication
     Route: 048
  51. AJOVY [Concomitant]
     Active Substance: FREMANEZUMAB-VFRM
     Indication: Migraine
     Dosage: 225MG/1.5ML; 1.5ML THREE TIMES IN 2 MONTHS
     Route: 058
  52. SCOPOLAMINE [Concomitant]
     Active Substance: SCOPOLAMINE
     Indication: Product used for unknown indication
     Dosage: 1MG /3 DAYS
  53. FENTANYL [Concomitant]
     Active Substance: FENTANYL
     Indication: Product used for unknown indication
     Dosage: 50 MCG/HR, 1 PATCH TO THE SKIN
  54. METOPROLOL TARTRATE [Concomitant]
     Active Substance: METOPROLOL TARTRATE
     Indication: Product used for unknown indication
     Dosage: MAY CRUSH TO ADMINISTER VIA G-TUBE
     Route: 048
  55. OMEPRAZOLE [Concomitant]
     Active Substance: OMEPRAZOLE
     Indication: Product used for unknown indication
     Route: 048
  56. BUSPIRONE HCL [Concomitant]
     Active Substance: BUSPIRONE HYDROCHLORIDE
     Indication: Anxiety
     Dosage: EVERY 12 HOURS AS NEEDED
  57. PRAZOSIN HYDROCHLORIDE [Concomitant]
     Active Substance: PRAZOSIN HYDROCHLORIDE
     Indication: Product used for unknown indication
     Dosage: AT BEDTIME
     Route: 048
  58. HALOPERIDOL LACTATE [Concomitant]
     Active Substance: HALOPERIDOL LACTATE
     Indication: Product used for unknown indication
     Dosage: 2 MG/ML; TAKE 2.5ML TWO TIMES DAILY
     Route: 048
  59. MEDICAL THC [Concomitant]
     Indication: Product used for unknown indication
  60. PEDIALYTE [Concomitant]
     Active Substance: POTASSIUM CITRATE\SODIUM CITRATE\ZINC
     Indication: Product used for unknown indication
     Dates: start: 20220321

REACTIONS (12)
  - Administration site pain [Unknown]
  - Device related infection [Unknown]
  - Contusion [Unknown]
  - Impaired gastric emptying [Unknown]
  - Arthralgia [Unknown]
  - Fatigue [Unknown]
  - Sleep disorder [Unknown]
  - Post-traumatic stress disorder [Unknown]
  - Weight decreased [Unknown]
  - Abdominal pain upper [Not Recovered/Not Resolved]
  - Nausea [Not Recovered/Not Resolved]
  - Vomiting [Unknown]

NARRATIVE: CASE EVENT DATE: 20220225
